FAERS Safety Report 8493936-6 (Version None)
Quarter: 2012Q3

REPORT INFORMATION
  Report Type: 
  Country: None (occurrence: None)
  Receive Date: 20120709
  Receipt Date: 20120628
  Transmission Date: 20120928
  Serious: Yes (Death)
  Sender: FDA-Public Use
  Company Number: US-BRISTOL-MYERS SQUIBB COMPANY-16723231

PATIENT
  Age: 57 Year
  Sex: Female

DRUGS (1)
  1. REYATAZ [Suspect]
     Dates: start: 20080601

REACTIONS (1)
  - DEATH [None]
